FAERS Safety Report 6747707-9 (Version None)
Quarter: 2010Q2

REPORT INFORMATION
  Report Type: 
  Country: None (occurrence: None)
  Receive Date: 20100528
  Receipt Date: 20100526
  Transmission Date: 20101027
  Serious: Yes (Other)
  Sender: FDA-Public Use
  Company Number: US-ELI_LILLY_AND_COMPANY-US201004006848

PATIENT
  Sex: Female

DRUGS (13)
  1. HUMALOG [Suspect]
     Indication: TYPE 2 DIABETES MELLITUS
     Dosage: UNK, AS NEEDED
     Dates: start: 20090101
  2. SIMVASTATIN [Concomitant]
  3. VITAMIN D [Concomitant]
  4. CALCIUM CARBONATE [Concomitant]
  5. LANTUS [Concomitant]
  6. ASPIRIN [Concomitant]
  7. PROVENTIL /00139501/ [Concomitant]
  8. PLAVIX [Concomitant]
  9. SYMBICORT [Concomitant]
  10. SYNTHROID [Concomitant]
  11. METOPROLOL [Concomitant]
  12. CAPADEX [Concomitant]
  13. GLUCAGON [Concomitant]

REACTIONS (6)
  - ASTHMA [None]
  - CONFUSIONAL STATE [None]
  - DYSPNOEA [None]
  - HEART RATE INCREASED [None]
  - HYPERHIDROSIS [None]
  - STENT PLACEMENT [None]
